FAERS Safety Report 19674122 (Version 2)
Quarter: 2021Q3

REPORT INFORMATION
  Report Type: Report from Study
  Country: US (occurrence: US)
  Receive Date: 20210809
  Receipt Date: 20210811
  Transmission Date: 20211014
  Serious: Yes (Other)
  Sender: FDA-Public Use
  Company Number: US-SA-2020SA082288

PATIENT
  Age: 56 Year
  Sex: Female

DRUGS (4)
  1. DUPILUMAB [Suspect]
     Active Substance: DUPILUMAB
     Dosage: 300 MG, QOW
     Route: 058
     Dates: start: 202003
  2. DUPILUMAB [Suspect]
     Active Substance: DUPILUMAB
     Dosage: UNK
     Dates: start: 202104, end: 2021
  3. XOLAIR [Suspect]
     Active Substance: OMALIZUMAB
     Dosage: UNK
  4. DUPILUMAB [Suspect]
     Active Substance: DUPILUMAB
     Indication: ASTHMA
     Dosage: 600 MG, 1X
     Route: 058
     Dates: start: 20200313, end: 20200313

REACTIONS (12)
  - Cataract [Unknown]
  - Injection site bruising [Not Recovered/Not Resolved]
  - Product preparation error [Recovered/Resolved]
  - Photophobia [Not Recovered/Not Resolved]
  - Contusion [Unknown]
  - Asthma [Unknown]
  - Drug hypersensitivity [Unknown]
  - Off label use [Unknown]
  - Vision blurred [Not Recovered/Not Resolved]
  - Asthma [Not Recovered/Not Resolved]
  - Injection site pain [Recovered/Resolved]
  - Eye pain [Not Recovered/Not Resolved]

NARRATIVE: CASE EVENT DATE: 202003
